FAERS Safety Report 6122851-8 (Version None)
Quarter: 2009Q1

REPORT INFORMATION
  Report Type: 
  Country: None (occurrence: None)
  Receive Date: 20090318
  Receipt Date: 20090313
  Transmission Date: 20090719
  Serious: Yes (Hospitalization)
  Sender: FDA-Public Use
  Company Number: B0557963A

PATIENT
  Age: 70 Year
  Sex: Male

DRUGS (8)
  1. VALTREX [Suspect]
     Indication: HERPES ZOSTER
     Dosage: 1000MG THREE TIMES PER DAY
     Route: 048
     Dates: start: 20090203, end: 20090210
  2. AMLODIPINE [Concomitant]
     Dosage: 5MG PER DAY
     Route: 048
     Dates: start: 20090203
  3. EUGLUCON [Concomitant]
     Dosage: 5MG PER DAY
     Route: 048
     Dates: start: 20090203
  4. UNKNOWN DRUG [Concomitant]
     Dosage: .9MG PER DAY
     Route: 048
     Dates: start: 20090203
  5. ACTOS [Concomitant]
     Dosage: 15MG PER DAY
     Route: 048
     Dates: start: 20090203
  6. CRESTOR [Concomitant]
     Dosage: 2.5MG PER DAY
     Route: 048
     Dates: start: 20090203
  7. DEPAS [Concomitant]
     Dosage: 1MG PER DAY
     Route: 048
     Dates: start: 20090203
  8. UNKNOWN DRUG [Concomitant]
     Dosage: 5MG PER DAY
     Route: 048
     Dates: start: 20090203

REACTIONS (4)
  - CHOLELITHIASIS [None]
  - ENZYME ABNORMALITY [None]
  - LOSS OF CONSCIOUSNESS [None]
  - PANCREATITIS ACUTE [None]
